FAERS Safety Report 23604019 (Version 1)
Quarter: 2024Q1

REPORT INFORMATION
  Report Type: Report from Study
  Country: JP (occurrence: JP)
  Receive Date: 20240307
  Receipt Date: 20240307
  Transmission Date: 20240410
  Serious: Yes (Other)
  Sender: FDA-Public Use
  Company Number: JP-GSK-JP2020JPN245012

PATIENT

DRUGS (48)
  1. MEPOLIZUMAB [Suspect]
     Active Substance: MEPOLIZUMAB
     Indication: Eosinophilic granulomatosis with polyangiitis
     Dosage: 100 MG
     Route: 058
     Dates: start: 20180627, end: 20180627
  2. MEPOLIZUMAB [Suspect]
     Active Substance: MEPOLIZUMAB
     Dosage: 100 MG
     Route: 058
     Dates: start: 20180801, end: 20180801
  3. MEPOLIZUMAB [Suspect]
     Active Substance: MEPOLIZUMAB
     Dosage: 100 MG
     Route: 058
     Dates: start: 20180830, end: 20180830
  4. MEPOLIZUMAB [Suspect]
     Active Substance: MEPOLIZUMAB
     Dosage: 100 MG
     Route: 058
     Dates: start: 20181001, end: 20181001
  5. MEPOLIZUMAB [Suspect]
     Active Substance: MEPOLIZUMAB
     Dosage: 100 MG
     Route: 058
     Dates: start: 20181127, end: 20181127
  6. MEPOLIZUMAB [Suspect]
     Active Substance: MEPOLIZUMAB
     Dosage: 100 MG
     Route: 058
     Dates: start: 20181225, end: 20181225
  7. MEPOLIZUMAB [Suspect]
     Active Substance: MEPOLIZUMAB
     Dosage: 100 MG
     Route: 058
     Dates: start: 20190122, end: 20190122
  8. MEPOLIZUMAB [Suspect]
     Active Substance: MEPOLIZUMAB
     Dosage: 100 MG
     Route: 058
     Dates: start: 20190219, end: 20190219
  9. MEPOLIZUMAB [Suspect]
     Active Substance: MEPOLIZUMAB
     Dosage: 100 MG
     Route: 058
     Dates: start: 20190319, end: 20190319
  10. MEPOLIZUMAB [Suspect]
     Active Substance: MEPOLIZUMAB
     Dosage: 100 MG
     Route: 058
     Dates: start: 20190417, end: 20190417
  11. MEPOLIZUMAB [Suspect]
     Active Substance: MEPOLIZUMAB
     Dosage: 100 MG
     Route: 058
     Dates: start: 20190514, end: 20190514
  12. MEPOLIZUMAB [Suspect]
     Active Substance: MEPOLIZUMAB
     Dosage: 100 MG
     Route: 058
     Dates: start: 20190611, end: 20190611
  13. MEPOLIZUMAB [Suspect]
     Active Substance: MEPOLIZUMAB
     Dosage: 100 MG
     Route: 058
     Dates: start: 20190709, end: 20190709
  14. MEPOLIZUMAB [Suspect]
     Active Substance: MEPOLIZUMAB
     Dosage: 100 MG
     Route: 058
     Dates: start: 20190806, end: 20190806
  15. MEPOLIZUMAB [Suspect]
     Active Substance: MEPOLIZUMAB
     Dosage: 100 MG
     Route: 058
     Dates: start: 20190903, end: 20190903
  16. MEPOLIZUMAB [Suspect]
     Active Substance: MEPOLIZUMAB
     Dosage: 100 MG
     Route: 058
     Dates: start: 20191001, end: 20191001
  17. MEPOLIZUMAB [Suspect]
     Active Substance: MEPOLIZUMAB
     Dosage: 100 MG
     Route: 058
     Dates: start: 20191029, end: 20191029
  18. MEPOLIZUMAB [Suspect]
     Active Substance: MEPOLIZUMAB
     Dosage: 100 MG
     Route: 058
     Dates: start: 20191126, end: 20191126
  19. MEPOLIZUMAB [Suspect]
     Active Substance: MEPOLIZUMAB
     Dosage: 100 MG
     Route: 058
     Dates: start: 20191224, end: 20191224
  20. MEPOLIZUMAB [Suspect]
     Active Substance: MEPOLIZUMAB
     Dosage: 100 MG
     Route: 058
     Dates: start: 20200121, end: 20200121
  21. MEPOLIZUMAB [Suspect]
     Active Substance: MEPOLIZUMAB
     Dosage: 100 MG
     Route: 058
     Dates: start: 20200218, end: 20200218
  22. MEPOLIZUMAB [Suspect]
     Active Substance: MEPOLIZUMAB
     Dosage: 100 MG
     Route: 058
     Dates: start: 20200317, end: 20200317
  23. MEPOLIZUMAB [Suspect]
     Active Substance: MEPOLIZUMAB
     Dosage: 100 MG
     Route: 058
     Dates: start: 20200414, end: 20200414
  24. MEPOLIZUMAB [Suspect]
     Active Substance: MEPOLIZUMAB
     Dosage: 100 MG, Q4W
     Route: 058
     Dates: start: 20201006, end: 20210202
  25. PREDONINE [Concomitant]
     Active Substance: PREDNISOLONE
     Indication: Eosinophilic pneumonia
     Dosage: 40 MG, QD
     Dates: start: 20180615, end: 20180703
  26. PREDONINE [Concomitant]
     Active Substance: PREDNISOLONE
     Indication: Eosinophilic granulomatosis with polyangiitis
     Dosage: 35 MG, QD
     Dates: start: 20180704, end: 20180710
  27. PREDONINE [Concomitant]
     Active Substance: PREDNISOLONE
     Dosage: 30 MG, QD
     Dates: start: 20180711, end: 20180717
  28. PREDONINE [Concomitant]
     Active Substance: PREDNISOLONE
     Dosage: 25 MG, QD
     Dates: start: 20180718, end: 20180724
  29. PREDONINE [Concomitant]
     Active Substance: PREDNISOLONE
     Dosage: 20 MG, QD
     Dates: start: 20180725, end: 20180729
  30. PREDONINE [Concomitant]
     Active Substance: PREDNISOLONE
     Dosage: 17.5 MG, QD
     Dates: start: 20180730, end: 20180827
  31. PREDONINE [Concomitant]
     Active Substance: PREDNISOLONE
     Dosage: 15 MG, QD
     Dates: start: 20180828, end: 20180930
  32. PREDONINE [Concomitant]
     Active Substance: PREDNISOLONE
     Dosage: 14 MG, QD
     Dates: start: 20181001, end: 20181029
  33. PREDONINE [Concomitant]
     Active Substance: PREDNISOLONE
     Dosage: 9 MG, QD
     Dates: start: 20181030, end: 20181126
  34. PREDONINE [Concomitant]
     Active Substance: PREDNISOLONE
     Dosage: 3 MG, QD
     Dates: start: 20181127, end: 20201005
  35. PREDONINE [Concomitant]
     Active Substance: PREDNISOLONE
     Dosage: 10 MG, QD
     Dates: start: 20201006, end: 20201207
  36. PREDONINE [Concomitant]
     Active Substance: PREDNISOLONE
     Dosage: 9 MG, QD
     Dates: start: 20201208, end: 20210201
  37. PREDONINE [Concomitant]
     Active Substance: PREDNISOLONE
     Dosage: 8 MG, QD
     Dates: start: 20210202
  38. SYMBICORT [Concomitant]
     Active Substance: BUDESONIDE\FORMOTEROL FUMARATE DIHYDRATE
     Indication: Asthma
     Dosage: 160 ?G, QD
     Route: 055
     Dates: start: 20150608
  39. METHOTREXATE [Concomitant]
     Active Substance: METHOTREXATE
     Indication: Eosinophilic granulomatosis with polyangiitis
     Dosage: UNK
     Dates: start: 201411
  40. METHOTREXATE [Concomitant]
     Active Substance: METHOTREXATE
     Dosage: 2 MG, QD
     Dates: end: 20180612
  41. LANSOPRAZOLE [Concomitant]
     Active Substance: LANSOPRAZOLE
     Indication: Prophylaxis against gastrointestinal ulcer
     Dosage: UNK
  42. LANSOPRAZOLE [Concomitant]
     Active Substance: LANSOPRAZOLE
     Indication: Prophylaxis against gastrointestinal ulcer
     Dosage: 15 MG, BID, IN THE MORNING AND NIGHT
     Dates: start: 20180611
  43. LANSOPRAZOLE [Concomitant]
     Active Substance: LANSOPRAZOLE
     Indication: Prophylaxis against gastrointestinal ulcer
  44. ALESION [Concomitant]
     Active Substance: EPINASTINE HYDROCHLORIDE
     Indication: Seasonal allergy
     Dosage: 10 MG, QD, AFTER BREAKFAST
     Dates: start: 20180402
  45. SULFAMETHOXAZOLE\TRIMETHOPRIM [Concomitant]
     Active Substance: SULFAMETHOXAZOLE\TRIMETHOPRIM
     Indication: Antifungal prophylaxis
     Dosage: 1 DF, QD, AFTER BREAKFAST
     Dates: start: 20180704
  46. MAGNESIUM OXIDE [Concomitant]
     Active Substance: MAGNESIUM OXIDE
     Indication: Constipation
     Dosage: 330 MG, BID, AFTER BREAKFAST AND DINNER
     Dates: start: 20190122
  47. ALENDRONATE SODIUM [Concomitant]
     Active Substance: ALENDRONATE SODIUM
     Indication: Osteoporosis prophylaxis
     Dosage: 35 MG, WE, AT THE TIME OF RISING
     Dates: start: 20141208
  48. LOXOPROFEN SODIUM [Concomitant]
     Active Substance: LOXOPROFEN SODIUM
     Indication: Arthralgia
     Dosage: 100 MG, QD
     Dates: start: 20160208

REACTIONS (4)
  - Eosinophilic pneumonia [Recovered/Resolved]
  - Prescribed underdose [Unknown]
  - Inappropriate schedule of product administration [Unknown]
  - Off label use [Unknown]

NARRATIVE: CASE EVENT DATE: 20180627
